FAERS Safety Report 16392888 (Version 1)
Quarter: 2019Q2

REPORT INFORMATION
  Report Type: Spontaneous
  Country: US (occurrence: US)
  Receive Date: 20190430
  Receipt Date: 20190430
  Transmission Date: 20190711
  Serious: No
  Sender: FDA-Public Use
  Company Number: None

PATIENT
  Age: 34 Year
  Sex: Male

DRUGS (1)
  1. MAVYRET [Suspect]
     Active Substance: GLECAPREVIR\PIBRENTASVIR
     Dates: start: 20190430

REACTIONS (6)
  - Fatigue [None]
  - Asthenia [None]
  - Loss of personal independence in daily activities [None]
  - Somnolence [None]
  - Hypoaesthesia [None]
  - Weight decreased [None]

NARRATIVE: CASE EVENT DATE: 20190430
